FAERS Safety Report 23658877 (Version 1)
Quarter: 2024Q1

REPORT INFORMATION
  Report Type: Spontaneous
  Country: US (occurrence: US)
  Receive Date: 20240321
  Receipt Date: 20240321
  Transmission Date: 20240410
  Serious: No
  Sender: FDA-Public Use
  Company Number: US-GSK-US2024GSK035397

PATIENT
  Sex: Female

DRUGS (2)
  1. WELLBUTRIN XL [Suspect]
     Active Substance: BUPROPION HYDROCHLORIDE
     Indication: Seizure
     Dosage: 150 MG
     Dates: start: 2019
  2. WELLBUTRIN XL [Suspect]
     Active Substance: BUPROPION HYDROCHLORIDE
     Dosage: 300 MG
     Dates: start: 2019

REACTIONS (4)
  - Therapy interrupted [Unknown]
  - Off label use [Unknown]
  - Inability to afford medication [Unknown]
  - Insurance issue [Unknown]
